FAERS Safety Report 18987556 (Version 6)
Quarter: 2023Q1

REPORT INFORMATION
  Report Type: Spontaneous
  Country: US (occurrence: US)
  Receive Date: 20210309
  Receipt Date: 20230227
  Transmission Date: 20230417
  Serious: Yes (Other)
  Sender: FDA-Public Use
  Company Number: US-PFIZER INC-2021251810

PATIENT
  Age: 63 Year
  Sex: Female
  Weight: 67.12 kg

DRUGS (1)
  1. PREMARIN [Suspect]
     Active Substance: ESTROGENS, CONJUGATED
     Indication: Blood oestrogen decreased
     Dosage: UNK

REACTIONS (5)
  - Diabetes mellitus [Unknown]
  - Rhinorrhoea [Unknown]
  - Seasonal allergy [Unknown]
  - Feeling abnormal [Unknown]
  - Excessive eye blinking [Unknown]
